FAERS Safety Report 23914347 (Version 1)
Quarter: 2024Q2

REPORT INFORMATION
  Report Type: Spontaneous
  Country: NL (occurrence: NL)
  Receive Date: 20240529
  Receipt Date: 20240529
  Transmission Date: 20240716
  Serious: Yes (Hospitalization)
  Sender: FDA-Public Use
  Company Number: None

PATIENT
  Age: 63 Year
  Sex: Female
  Weight: 82.5 kg

DRUGS (19)
  1. PACLITAXEL [Suspect]
     Active Substance: PACLITAXEL
     Indication: Porocarcinoma
     Dosage: ONE-TIME IV GIFT? / BRAND NAME NOT SPECIFIED
     Route: 065
     Dates: start: 20240422
  2. CINACALCET [Concomitant]
     Active Substance: CINACALCET
     Indication: Product used for unknown indication
     Dosage: TABLET, 30 MG (MILLIGRAM)? / BRAND NAME NOT SPECIFIED
     Route: 065
  3. METOPROLOL [Concomitant]
     Active Substance: METOPROLOL
     Indication: Product used for unknown indication
     Dosage: CAPSULE, 12.5 MG (MILLIGRAM)? / BRAND NAME NOT SPECIFIED
     Route: 065
  4. AMLODIPINE [Concomitant]
     Active Substance: AMLODIPINE BESYLATE
     Indication: Product used for unknown indication
     Dosage: TABLET, 10 MG (MILLIGRAM)?/ BRAND NAME NOT SPECIFIED
     Route: 065
  5. GRANISETRON [Concomitant]
     Active Substance: GRANISETRON
     Indication: Product used for unknown indication
     Dosage: TABLET, 2 MG (MILLIGRAM)? / BRAND NAME NOT SPECIFIED
     Route: 065
  6. ZOLPIDEM [Concomitant]
     Active Substance: ZOLPIDEM TARTRATE
     Indication: Product used for unknown indication
     Dosage: TABLET, 5 MG (MILLIGRAM)? / BRAND NAME NOT SPECIFIED
     Route: 065
  7. TACROLIMUS [Concomitant]
     Active Substance: TACROLIMUS
     Indication: Product used for unknown indication
     Dosage: MODIFIED-RELEASE CAPSULE, 1 MG (MILLIGRAM)
     Route: 065
  8. COZAAR [Concomitant]
     Active Substance: LOSARTAN POTASSIUM
     Indication: Product used for unknown indication
     Dosage: FILM-COATED TABLET, 50 MG (MILLIGRAM)
     Route: 065
  9. LEVOCETIRIZINE [Concomitant]
     Active Substance: LEVOCETIRIZINE
     Indication: Product used for unknown indication
     Dosage: FILM-COATED TABLET, 5 MG (MILLIGRAM)? / BRAND NAME NOT SPECIFIED
     Route: 065
  10. CELLCEPT [Concomitant]
     Active Substance: MYCOPHENOLATE MOFETIL
     Indication: Product used for unknown indication
     Dosage: CAPSULE, 250 MG (MILLIGRAM)
     Route: 065
  11. ESOMEPRAZOLE [Concomitant]
     Active Substance: ESOMEPRAZOLE
     Indication: Product used for unknown indication
     Dosage: GASTRO-RESISTANT CAPSULE, 40 MG (MILLIGRAM)?/ BRAND NAME NOT SPECIFIED
     Route: 065
  12. AZITHROMYCIN [Concomitant]
     Active Substance: AZITHROMYCIN
     Indication: Product used for unknown indication
     Dosage: TABLET, 250 MG (MILLIGRAM)?? / BRAND NAME NOT SPECIFIED
     Route: 065
  13. DEXAMETHASONE [Concomitant]
     Active Substance: DEXAMETHASONE
     Indication: Product used for unknown indication
     Dosage: CAPSULE, 10 MG (MILLIGRAM)? / BRAND NAME NOT SPECIFIED
     Route: 065
  14. CARBOPLATIN [Suspect]
     Active Substance: CARBOPLATIN
     Indication: Porocarcinoma
     Dosage: ONE-TIME IV GIFT? / BRAND NAME NOT SPECIFIED
     Route: 065
     Dates: start: 20240422
  15. MOVICOLON [Concomitant]
     Active Substance: POLYETHYLENE GLYCOL 3350\POTASSIUM CHLORIDE\SODIUM BICARBONATE\SODIUM CHLORIDE
     Indication: Product used for unknown indication
     Dosage: POWDER FOR DRINK
     Route: 065
  16. MAGNESIUM GLUCONATE [Concomitant]
     Active Substance: MAGNESIUM GLUCONATE
     Indication: Product used for unknown indication
     Dosage: TABLET, 500 MG (MILLIGRAM)?(1.2MMOL MAG) / BRAND NAME NOT SPECIFIED
     Route: 065
  17. CLEMASTINE [Concomitant]
     Active Substance: CLEMASTINE
     Indication: Product used for unknown indication
     Dosage: TABLET, 1 MG (MILLIGRAM)?/ BRAND NAME NOT SPECIFIED
     Route: 065
  18. FLUVASTATIN [Concomitant]
     Active Substance: FLUVASTATIN SODIUM
     Indication: Product used for unknown indication
     Dosage: CAPSULE, 40 MG (MILLIGRAM)? / BRAND NAME NOT SPECIFIED
     Route: 065
  19. OXYCODONE [Concomitant]
     Active Substance: OXYCODONE\OXYCODONE HYDROCHLORIDE
     Indication: Product used for unknown indication
     Dosage: CAPSULE, 5 MG (MILLIGRAM)? / BRAND NAME NOT SPECIFIED
     Route: 065

REACTIONS (1)
  - Nausea [Recovering/Resolving]
